FAERS Safety Report 8113810-4 (Version None)
Quarter: 2012Q1

REPORT INFORMATION
  Report Type: 
  Country: None (occurrence: None)
  Receive Date: 20120203
  Receipt Date: 20120125
  Transmission Date: 20120608
  Serious: Yes (Other)
  Sender: FDA-Public Use
  Company Number: AR-ELI_LILLY_AND_COMPANY-AR201201003370

PATIENT
  Sex: Female

DRUGS (10)
  1. BYETTA [Suspect]
     Dosage: 10 UG, QD
     Dates: start: 20120101
  2. METFORMIN HCL [Concomitant]
  3. INSULATARD NPH HUMAN [Concomitant]
  4. BYETTA [Suspect]
     Indication: DIABETES MELLITUS
     Dosage: 5 UG, UNK
     Dates: start: 20110101, end: 20111101
  5. LOSARTAN POTASSIUM [Concomitant]
  6. BYETTA [Suspect]
     Dosage: 10 UG, QD
     Dates: start: 20120107
  7. DIOSMIN W/HESPERIDIN [Concomitant]
  8. T4 [Concomitant]
  9. ATENOLOL [Concomitant]
  10. CLONAZEPAM [Concomitant]

REACTIONS (6)
  - OFF LABEL USE [None]
  - BLOOD GLUCOSE DECREASED [None]
  - DIZZINESS [None]
  - PRESYNCOPE [None]
  - NAUSEA [None]
  - TACHYCARDIA [None]
